FAERS Safety Report 9351176 (Version 2)
Quarter: 2013Q4

REPORT INFORMATION
  Report Type: Spontaneous
  Country: BE (occurrence: BE)
  Receive Date: 20130617
  Receipt Date: 20131119
  Transmission Date: 20140711
  Serious: Yes (Hospitalization)
  Sender: FDA-Public Use
  Company Number: BE-BAYER-2013-073625

PATIENT
  Age: 86 Year
  Sex: Female

DRUGS (10)
  1. ULTRAVIST [Suspect]
  2. CORDARONE [Concomitant]
     Dosage: 200 MG, QD
  3. PLAVIX [Concomitant]
     Dosage: 75 MG, QD
  4. CITALOPRAM [Concomitant]
     Dosage: 20 MG, QD
  5. CRESTOR [Concomitant]
     Dosage: 10 MG, QD
  6. BETAHISTINE [Concomitant]
     Dosage: 16 MG, HS
  7. ALENDRONATE SODIUM [Concomitant]
     Dosage: 70 MG, OW
  8. CALCIUM [Concomitant]
     Dosage: 1 G, QD
  9. SPIRIVA [Concomitant]
     Dosage: 1 GEL PER DAY
  10. LORAZEPAM [Concomitant]
     Dosage: 1 TO 4 PER DAY

REACTIONS (2)
  - Eczema [Recovered/Resolved]
  - Skin reaction [None]
